FAERS Safety Report 5649553-6 (Version None)
Quarter: 2008Q1

REPORT INFORMATION
  Report Type: 
  Country: None (occurrence: None)
  Receive Date: 20080131
  Receipt Date: 20071119
  Transmission Date: 20080703
  Serious: No
  Sender: FDA-Public Use
  Company Number: US200705007166

PATIENT
  Age: 68 Year
  Sex: Female
  Weight: 108.8 kg

DRUGS (14)
  1. BYETTA [Suspect]
     Indication: TYPE 2 DIABETES MELLITUS
     Dosage: 5 UG, 2/D, SUBCUTANEOUS ; 10 UG, 2/D, SUBCUTANEOUS
     Route: 058
     Dates: start: 20051201, end: 20060101
  2. BYETTA [Suspect]
     Indication: TYPE 2 DIABETES MELLITUS
     Dosage: 5 UG, 2/D, SUBCUTANEOUS ; 10 UG, 2/D, SUBCUTANEOUS
     Route: 058
     Dates: start: 20060101, end: 20070523
  3. HUMALOG MIX 75/25 [Concomitant]
  4. LANTUS [Concomitant]
  5. ASPIRIN [Concomitant]
  6. BETA BLOCKING AGENTS [Concomitant]
  7. GLUCOPHAGE [Concomitant]
  8. POTASSIUM (POTASSIUM) [Concomitant]
  9. LIPITOR [Concomitant]
  10. NIASPAN [Concomitant]
  11. HYDROCHLOROTHIAZIDE [Concomitant]
  12. LISINOPRIL [Concomitant]
  13. ATENOLOL [Concomitant]
  14. TORSEMIDE [Concomitant]

REACTIONS (14)
  - BLOOD GLUCOSE INCREASED [None]
  - CONFUSIONAL STATE [None]
  - CONSTIPATION [None]
  - DIZZINESS [None]
  - DYSPNOEA [None]
  - FAECES HARD [None]
  - FATIGUE [None]
  - FRUSTRATION [None]
  - GLYCOSYLATED HAEMOGLOBIN INCREASED [None]
  - MALAISE [None]
  - NAUSEA [None]
  - PALPITATIONS [None]
  - WEIGHT DECREASED [None]
  - WEIGHT INCREASED [None]
